FAERS Safety Report 9464116 (Version 1)
Quarter: 2013Q3

REPORT INFORMATION
  Report Type: Spontaneous
  Country: US (occurrence: US)
  Receive Date: 20130819
  Receipt Date: 20130819
  Transmission Date: 20140515
  Serious: Yes (Other)
  Sender: FDA-Public Use
  Company Number: US-MYLANLABS-2013S1017556

PATIENT
  Age: 22 Year
  Sex: Female

DRUGS (3)
  1. VANCOMYCIN [Suspect]
     Indication: CELLULITIS
     Dosage: 18 MG/KG (1500MG) EVERY 8 HOURS
     Route: 065
  2. CLINDAMYCIN [Concomitant]
     Indication: CELLULITIS
     Route: 065
  3. ZOSYN [Concomitant]
     Indication: CELLULITIS
     Route: 065

REACTIONS (4)
  - Renal failure acute [Recovering/Resolving]
  - Toxicity to various agents [Recovered/Resolved]
  - Exposure during pregnancy [Recovered/Resolved]
  - Normal newborn [Recovered/Resolved]
